FAERS Safety Report 5268208-3 (Version None)
Quarter: 2007Q1

REPORT INFORMATION
  Report Type: 
  Country: None (occurrence: None)
  Receive Date: 20070319
  Receipt Date: 20070314
  Transmission Date: 20070707
  Serious: Yes (Hospitalization)
  Sender: FDA-Public Use
  Company Number: FR-BRISTOL-MYERS SQUIBB COMPANY-13715966

PATIENT
  Age: 14 Year
  Sex: Female

DRUGS (2)
  1. AMIKLIN [Suspect]
     Dates: start: 20061201, end: 20061203
  2. ROCEPHIN [Suspect]
     Dates: start: 20061201, end: 20061206

REACTIONS (1)
  - PANCREATITIS [None]
